FAERS Safety Report 9414741 (Version 1)
Quarter: 2013Q3

REPORT INFORMATION
  Report Type: Spontaneous
  Country: US (occurrence: None)
  Receive Date: 20130718
  Receipt Date: 20130718
  Transmission Date: 20140515
  Serious: Yes (Other)
  Sender: FDA-Public Use
  Company Number: 2013SA071438

PATIENT
  Age: 54 Year
  Sex: Female

DRUGS (1)
  1. CAPZASIN HP CREME [Suspect]
     Indication: PAIN IN EXTREMITY
     Dates: start: 20130709

REACTIONS (3)
  - Application site burn [None]
  - Application site vesicles [None]
  - Application site scab [None]
